FAERS Safety Report 6368524-8 (Version None)
Quarter: 2009Q3

REPORT INFORMATION
  Report Type: 
  Country: None (occurrence: None)
  Receive Date: 20090922
  Receipt Date: 20090915
  Transmission Date: 20100115
  Serious: Yes (Hospitalization)
  Sender: FDA-Public Use
  Company Number: B0594435A

PATIENT
  Sex: Male

DRUGS (4)
  1. AUGMENTIN '125' [Suspect]
     Indication: BRONCHOPNEUMONIA
     Dosage: 3G PER DAY
     Route: 048
     Dates: start: 20090623, end: 20090702
  2. CIPRALEX [Concomitant]
     Dosage: 10MG PER DAY
     Route: 048
  3. DEPAKIN [Concomitant]
     Route: 048
  4. SEROQUEL [Concomitant]
     Route: 048

REACTIONS (2)
  - HAEMOLYTIC ANAEMIA [None]
  - SPLENOMEGALY [None]
